FAERS Safety Report 25131052 (Version 1)
Quarter: 2025Q1

REPORT INFORMATION
  Report Type: Spontaneous
  Country: US (occurrence: US)
  Receive Date: 20250327
  Receipt Date: 20250327
  Transmission Date: 20250408
  Serious: Yes (Hospitalization)
  Sender: BRISTOL-MYERS SQUIBB COMPANY
  Company Number: US-BRISTOL-MYERS SQUIBB COMPANY-2025-041673

PATIENT
  Age: 75 Year
  Sex: Female
  Weight: 74.39 kg

DRUGS (2)
  1. POMALYST [Suspect]
     Active Substance: POMALIDOMIDE
     Indication: Plasma cell myeloma
     Dosage: 3 WEEKS ON, 1 WEEK OFF
     Route: 048
  2. SELINEXOR [Concomitant]
     Active Substance: SELINEXOR
     Indication: Product used for unknown indication
     Dates: start: 20250311

REACTIONS (1)
  - COVID-19 [Recovering/Resolving]

NARRATIVE: CASE EVENT DATE: 20250301
